FAERS Safety Report 7541692-8 (Version None)
Quarter: 2011Q2

REPORT INFORMATION
  Report Type: 
  Country: None (occurrence: None)
  Receive Date: 20110531
  Receipt Date: 20110525
  Transmission Date: 20111010
  Serious: Yes (Life-Threatening)
  Sender: FDA-Public Use
  Company Number: 2011028710

PATIENT
  Age: 43 Year
  Sex: Female

DRUGS (1)
  1. PRIVIGEN [Suspect]
     Indication: COMBINED IMMUNODEFICIENCY
     Dosage: 30 G QD
     Route: 042
     Dates: start: 20110101

REACTIONS (2)
  - PULMONARY ARTERIAL HYPERTENSION [None]
  - DYSPNOEA [None]
